FAERS Safety Report 23330760 (Version 1)
Quarter: 2023Q4

REPORT INFORMATION
  Report Type: Spontaneous
  Country: GR (occurrence: GR)
  Receive Date: 20231222
  Receipt Date: 20231222
  Transmission Date: 20240109
  Serious: Yes (Hospitalization)
  Sender: FDA-Public Use
  Company Number: GR-ELI_LILLY_AND_COMPANY-GR202312004791

PATIENT
  Sex: Male

DRUGS (1)
  1. OLANZAPINE PAMOATE [Suspect]
     Active Substance: OLANZAPINE PAMOATE
     Indication: Schizophrenia
     Dosage: 405 MG, MONTHLY (1/M)?DAILY DOSE: 405 MILLIGRAM
     Route: 030
     Dates: end: 20231207

REACTIONS (4)
  - Lethargy [Recovered/Resolved]
  - Hypokinesia [Recovered/Resolved]
  - Dysarthria [Recovered/Resolved]
  - Post-injection delirium sedation syndrome [Recovered/Resolved]

NARRATIVE: CASE EVENT DATE: 20231206
